FAERS Safety Report 7479449-9 (Version None)
Quarter: 2011Q2

REPORT INFORMATION
  Report Type: 
  Country: None (occurrence: None)
  Receive Date: 20110513
  Receipt Date: 20110510
  Transmission Date: 20111010
  Serious: Yes (Hospitalization)
  Sender: FDA-Public Use
  Company Number: CA-ABBOTT-11P-028-0724833-00

PATIENT
  Sex: Male
  Weight: 88.53 kg

DRUGS (14)
  1. METHOTREXATE [Concomitant]
     Indication: PSORIATIC ARTHROPATHY
     Dates: start: 20070101
  2. VENLAFAXINE [Concomitant]
     Indication: GASTRIC DISORDER
     Route: 048
     Dates: start: 20080101
  3. HUMIRA [Suspect]
     Indication: PSORIATIC ARTHROPATHY
     Route: 058
     Dates: start: 20100628
  4. APO-DITIAZ [Concomitant]
     Indication: CARDIAC DISORDER
     Route: 048
     Dates: start: 19900101
  5. ATORVASTATIN [Concomitant]
     Indication: BLOOD CHOLESTEROL INCREASED
     Dates: start: 20090101
  6. COVERYSL [Concomitant]
     Indication: HYPERTENSION
     Dates: start: 20090101
  7. FOLIC ACID [Concomitant]
     Indication: PRODUCT USED FOR UNKNOWN INDICATION
     Dates: start: 20070101
  8. FLOMAX [Concomitant]
     Indication: HYPERTONIC BLADDER
     Route: 048
     Dates: start: 20010101
  9. ASAPHEN [Concomitant]
     Indication: HYPERTENSION
     Route: 048
  10. SANDOZ BISOPROLOL [Concomitant]
     Indication: ISCHAEMIC HEART DISEASE PROPHYLAXIS
     Route: 048
     Dates: start: 20090101
  11. APO-PANTOPRAZOLE [Concomitant]
     Indication: GASTRIC DISORDER
     Route: 048
     Dates: start: 20080101
  12. PLAVIX [Concomitant]
     Indication: HYPERTENSION
     Dates: start: 20090101
  13. NAPROSYN [Concomitant]
     Indication: PSORIATIC ARTHROPATHY
     Route: 048
     Dates: start: 19900101
  14. FINATERIDE [Concomitant]
     Indication: HYPERTONIC BLADDER
     Route: 048
     Dates: start: 20010101

REACTIONS (3)
  - PYREXIA [None]
  - NEPHROLITHIASIS [None]
  - DISORIENTATION [None]
